FAERS Safety Report 9105569 (Version 3)
Quarter: 2013Q3

REPORT INFORMATION
  Report Type: Spontaneous
  Country: AU (occurrence: AU)
  Receive Date: 20130220
  Receipt Date: 20130919
  Transmission Date: 20140515
  Serious: Yes (Hospitalization)
  Sender: FDA-Public Use
  Company Number: AU-UCBSA-078318

PATIENT
  Age: 55 Year
  Sex: Female

DRUGS (4)
  1. CIMZIA [Suspect]
     Indication: RHEUMATOID ARTHRITIS
     Dosage: LOADING DOSE,TOTAL DOSES:3
     Route: 058
     Dates: start: 2013, end: 201302
  2. METHOTREXATE [Concomitant]
  3. PLAQUENIL [Concomitant]
  4. LEFLUNOMIDE [Concomitant]

REACTIONS (1)
  - Interstitial lung disease [Recovered/Resolved]
